FAERS Safety Report 7620152-X (Version None)
Quarter: 2011Q3

REPORT INFORMATION
  Report Type: 
  Country: None (occurrence: None)
  Receive Date: 20110719
  Receipt Date: 20110711
  Transmission Date: 20111222
  Serious: Yes (Other)
  Sender: FDA-Public Use
  Company Number: FR-JNJFOC-20110701427

PATIENT
  Sex: Male

DRUGS (4)
  1. NIZORAL [Suspect]
     Indication: PROSTATE CANCER
     Route: 048
     Dates: start: 20110629
  2. CLOPIDOGREL [Concomitant]
     Route: 065
  3. HYDROCORTISONE [Concomitant]
     Route: 065
  4. DECAPEPTYL [Concomitant]
     Route: 065

REACTIONS (3)
  - PROSTATE CANCER RECURRENT [None]
  - OVERDOSE [None]
  - OFF LABEL USE [None]
